FAERS Safety Report 8146389-1 (Version None)
Quarter: 2012Q1

REPORT INFORMATION
  Report Type: 
  Country: None (occurrence: None)
  Receive Date: 20120217
  Receipt Date: 20110901
  Transmission Date: 20120608
  Serious: No
  Sender: FDA-Public Use
  Company Number: US-ABBOTT-11P-163-0850794-00

PATIENT
  Sex: Male
  Weight: 95.34 kg

DRUGS (1)
  1. SIMCOR [Suspect]
     Indication: PRODUCT USED FOR UNKNOWN INDICATION
     Dosage: 550/20 MG AT BEDTIME THEN SWITCHED TO 1000/NR
     Route: 048

REACTIONS (4)
  - FEELING HOT [None]
  - FLUSHING [None]
  - ERYTHEMA [None]
  - PRURITUS [None]
